FAERS Safety Report 5246919-3 (Version None)
Quarter: 2007Q1

REPORT INFORMATION
  Report Type: 
  Country: None (occurrence: None)
  Receive Date: 20070226
  Receipt Date: 20070208
  Transmission Date: 20070707
  Serious: Yes (Life-Threatening, Hospitalization, Congenital Anomaly, Other)
  Sender: FDA-Public Use
  Company Number: GB-BOEHRINGER INGELHEIM GMBH, GERMANY-2007-UK-00068UK

PATIENT
  Age: 7 Month
  Sex: Female
  Weight: 5 kg

DRUGS (4)
  1. VIRAMUNE [Suspect]
     Indication: RETROVIRAL INFECTION
     Route: 064
     Dates: start: 20050922, end: 20060509
  2. VIRAMUNE [Suspect]
     Route: 048
  3. COMBIVIR [Suspect]
     Indication: HIV INFECTION
     Route: 064
     Dates: start: 20050901
  4. ZIDOVUDINE [Suspect]
     Indication: PROPHYLAXIS AGAINST HIV INFECTION
     Route: 064
     Dates: start: 20060701, end: 20060801

REACTIONS (3)
  - METHYLMALONIC ACIDURIA [None]
  - UNDERWEIGHT [None]
  - VITAMIN B12 DEFICIENCY [None]
